FAERS Safety Report 7346259-2 (Version None)
Quarter: 2011Q1

REPORT INFORMATION
  Report Type: 
  Country: None (occurrence: None)
  Receive Date: 20110311
  Receipt Date: 20110309
  Transmission Date: 20110831
  Serious: No
  Sender: FDA-Public Use
  Company Number: US-PFIZER INC-2011053524

PATIENT
  Sex: Male

DRUGS (3)
  1. LIPITOR [Suspect]
     Indication: BLOOD CHOLESTEROL INCREASED
     Dosage: 5 MG, 1X/DAY
     Route: 048
  2. AMLODIPINE BESYLATE/VALSARTAN [Concomitant]
     Dosage: 10/320  MG DAILY
  3. LIPITOR [Suspect]
     Dosage: 10 MG, ALTERNATE DAY
     Route: 048

REACTIONS (3)
  - MUSCULAR WEAKNESS [None]
  - MUSCLE SPASMS [None]
  - MYALGIA [None]
